FAERS Safety Report 10853689 (Version 3)
Quarter: 2015Q2

REPORT INFORMATION
  Report Type: Report from Study
  Country: BE (occurrence: BE)
  Receive Date: 20150223
  Receipt Date: 20150422
  Transmission Date: 20150821
  Serious: Yes (Other)
  Sender: FDA-Public Use
  Company Number: BE-AMGEN-BELSL2014091694

PATIENT
  Age: 76 Year
  Sex: Female

DRUGS (1)
  1. NPLATE [Suspect]
     Active Substance: ROMIPLOSTIM
     Indication: IMMUNE THROMBOCYTOPENIC PURPURA
     Dosage: 0.4 ML (250MCG), QWK
     Route: 058
     Dates: start: 20100908

REACTIONS (6)
  - Haemorrhoids [Recovered/Resolved]
  - Faecaloma [Recovered/Resolved]
  - Diarrhoea [Unknown]
  - Paraesthesia [Not Recovered/Not Resolved]
  - Constipation [Recovered/Resolved]
  - Dyspepsia [Recovering/Resolving]

NARRATIVE: CASE EVENT DATE: 201411
